FAERS Safety Report 13469556 (Version 1)
Quarter: 2017Q2

REPORT INFORMATION
  Report Type: Other
  Country: GB (occurrence: CA)
  Receive Date: 20170421
  Receipt Date: 20170421
  Transmission Date: 20170830
  Serious: Yes (Other)
  Sender: FDA-Public Use
  Company Number: CA-INTERNATIONAL MEDICATION SYSTEMS, LIMITED-1065694

PATIENT
  Age: 30 Year
  Sex: Female

DRUGS (1)
  1. EPINEPHRINE 1:1000 [Suspect]
     Active Substance: EPINEPHRINE
     Indication: HAEMOSTASIS

REACTIONS (1)
  - Stress cardiomyopathy [Recovered/Resolved]
